FAERS Safety Report 11862846 (Version 2)
Quarter: 2015Q4

REPORT INFORMATION
  Report Type: Report from Study
  Country: CA (occurrence: CA)
  Receive Date: 20151223
  Receipt Date: 20151225
  Transmission Date: 20160305
  Serious: Yes (Life-Threatening, Hospitalization)
  Sender: FDA-Public Use
  Company Number: CA-ROCHE-1562392

PATIENT
  Age: 62 Year
  Sex: Female
  Weight: 96 kg

DRUGS (15)
  1. ACTEMRA [Suspect]
     Active Substance: TOCILIZUMAB
     Route: 042
     Dates: start: 20151015
  2. ADVIL [Suspect]
     Active Substance: IBUPROFEN
     Indication: PRODUCT USED FOR UNKNOWN INDICATION
     Dosage: LIQUID GEL
     Route: 048
     Dates: start: 20151119
  3. ACTEMRA [Suspect]
     Active Substance: TOCILIZUMAB
     Route: 042
     Dates: start: 20150702
  4. ACTEMRA [Suspect]
     Active Substance: TOCILIZUMAB
     Indication: RHEUMATOID ARTHRITIS
     Route: 042
     Dates: start: 20150210
  5. ACTEMRA [Suspect]
     Active Substance: TOCILIZUMAB
     Route: 042
     Dates: start: 20150820
  6. PREDNISONE. [Concomitant]
     Active Substance: PREDNISONE
  7. ROSUVASTATIN [Concomitant]
     Active Substance: ROSUVASTATIN
  8. ACTEMRA [Suspect]
     Active Substance: TOCILIZUMAB
     Route: 042
     Dates: start: 20150408
  9. ACTEMRA [Suspect]
     Active Substance: TOCILIZUMAB
     Route: 042
     Dates: start: 20151121, end: 20151121
  10. METHOTREXATE [Concomitant]
     Active Substance: METHOTREXATE
  11. ACTEMRA [Suspect]
     Active Substance: TOCILIZUMAB
     Route: 042
     Dates: start: 20150917
  12. ASA [Concomitant]
     Active Substance: ASPIRIN
  13. ACTEMRA [Suspect]
     Active Substance: TOCILIZUMAB
     Route: 042
     Dates: start: 20150310
  14. HYDERM (CANADA) [Concomitant]
  15. FOLIC ACID. [Concomitant]
     Active Substance: FOLIC ACID

REACTIONS (11)
  - Arthritis [Unknown]
  - Abdominal pain [Unknown]
  - Weight increased [Not Recovered/Not Resolved]
  - Pharyngitis [Recovered/Resolved]
  - Pyrexia [Unknown]
  - Nasopharyngitis [Not Recovered/Not Resolved]
  - Vomiting [Unknown]
  - Rash [Not Recovered/Not Resolved]
  - Alopecia [Unknown]
  - Viral infection [Not Recovered/Not Resolved]
  - Intestinal perforation [Unknown]

NARRATIVE: CASE EVENT DATE: 201504
